FAERS Safety Report 7312465-6 (Version None)
Quarter: 2011Q1

REPORT INFORMATION
  Report Type: 
  Country: None (occurrence: None)
  Receive Date: 20110224
  Receipt Date: 20100428
  Transmission Date: 20110831
  Serious: No
  Sender: FDA-Public Use
  Company Number: US-MYLANLABS-2010S1007569

PATIENT
  Sex: Male

DRUGS (1)
  1. GUANFACINE [Suspect]
     Indication: ATTENTION DEFICIT/HYPERACTIVITY DISORDER
     Route: 048
     Dates: end: 20100420

REACTIONS (3)
  - HALLUCINATION [None]
  - VISUAL IMPAIRMENT [None]
  - ANXIETY [None]
